FAERS Safety Report 22287334 (Version 2)
Quarter: 2024Q3

REPORT INFORMATION
  Report Type: Spontaneous
  Country: FR (occurrence: FR)
  Receive Date: 20230505
  Receipt Date: 20240712
  Transmission Date: 20241016
  Serious: Yes (Other)
  Sender: RANBAXY
  Company Number: FR-AFSSAPS-NC2023000286

PATIENT
  Age: 87 Year
  Sex: Female
  Weight: 57 kg

DRUGS (1)
  1. AMLODIPINE [Suspect]
     Active Substance: AMLODIPINE BESYLATE
     Indication: Hypertension
     Dosage: NOT SPECIFIED
     Route: 048
     Dates: start: 20230224, end: 20230228

REACTIONS (2)
  - Cholestasis [Recovering/Resolving]
  - Hepatitis acute [Recovering/Resolving]

NARRATIVE: CASE EVENT DATE: 20230227
